FAERS Safety Report 8249768-7 (Version None)
Quarter: 2012Q2

REPORT INFORMATION
  Report Type: 
  Country: None (occurrence: None)
  Receive Date: 20120402
  Receipt Date: 20120323
  Transmission Date: 20120825
  Serious: Yes (Hospitalization, Other)
  Sender: FDA-Public Use
  Company Number: PHHY2012AU025888

PATIENT
  Sex: Female

DRUGS (5)
  1. CLOZARIL [Suspect]
     Indication: SCHIZOPHRENIA
     Dosage: 700 MG, UNK
     Dates: start: 20030915
  2. VALPROATE SODIUM [Concomitant]
     Indication: MOOD ALTERED
     Dosage: 500 MG, BID
     Dates: start: 20120301
  3. OLMESARTAN MEDOXOMIL [Concomitant]
     Indication: HYPERTENSION
     Dosage: 20 MG, MANE
     Route: 048
     Dates: end: 20120301
  4. MEDROXYPROGESTERONE [Concomitant]
     Indication: CONTRACEPTION
     Dosage: 150 MG, EVERY 3 MONTHS
     Route: 030
  5. ARIPIPRAZOLE [Concomitant]
     Dosage: 10 MG, DAILY
     Route: 048
     Dates: start: 20120301

REACTIONS (5)
  - PARANOIA [None]
  - ANTIPSYCHOTIC DRUG LEVEL INCREASED [None]
  - FLAT AFFECT [None]
  - MENTAL DISORDER [None]
  - C-REACTIVE PROTEIN INCREASED [None]
